FAERS Safety Report 20476487 (Version 3)
Quarter: 2022Q2

REPORT INFORMATION
  Report Type: Spontaneous
  Country: FR (occurrence: FR)
  Receive Date: 20220215
  Receipt Date: 20220405
  Transmission Date: 20220721
  Serious: Yes (Hospitalization, Other)
  Sender: FDA-Public Use
  Company Number: FR-ALXN-A202200708

PATIENT
  Age: 36 Year
  Sex: Male
  Weight: 87 kg

DRUGS (5)
  1. PFIZER-BIONTECH COVID-19 VACCINE [Suspect]
     Active Substance: TOZINAMERAN
     Indication: COVID-19 immunisation
     Dosage: UNK
     Route: 065
  2. PFIZER-BIONTECH COVID-19 VACCINE [Suspect]
     Active Substance: TOZINAMERAN
     Dosage: UNK
     Route: 065
     Dates: start: 20210615
  3. PFIZER-BIONTECH COVID-19 VACCINE [Suspect]
     Active Substance: TOZINAMERAN
     Dosage: UNK
     Route: 065
  4. SOLIRIS [Suspect]
     Active Substance: ECULIZUMAB
     Dosage: 1200 MG, QW
     Route: 042
  5. SOLIRIS [Suspect]
     Active Substance: ECULIZUMAB
     Indication: Atypical haemolytic uraemic syndrome
     Dosage: 1200 MG, Q3W
     Route: 065

REACTIONS (4)
  - Atypical haemolytic uraemic syndrome [Unknown]
  - Hypertension [Recovered/Resolved with Sequelae]
  - Thrombotic microangiopathy [Unknown]
  - Off label use [Unknown]

NARRATIVE: CASE EVENT DATE: 20220106
